FAERS Safety Report 6538071-9 (Version None)
Quarter: 2010Q1

REPORT INFORMATION
  Report Type: 
  Country: None (occurrence: None)
  Receive Date: 20100114
  Receipt Date: 20100104
  Transmission Date: 20100710
  Serious: Yes (Hospitalization)
  Sender: FDA-Public Use
  Company Number: DE-ABBOTT-10P-062-0617519-00

PATIENT
  Age: 39 Year
  Sex: Female

DRUGS (9)
  1. ERGENYL CHRONO TABLETS [Suspect]
     Indication: DRUG USE FOR UNKNOWN INDICATION
     Route: 048
     Dates: start: 20070101, end: 20070528
  2. ERGENYL CHRONO TABLETS [Interacting]
     Route: 048
     Dates: start: 20070529, end: 20070627
  3. CLOZAPINE [Interacting]
     Indication: DRUG USE FOR UNKNOWN INDICATION
     Dates: start: 20070527, end: 20070627
  4. IMPROMEN [Interacting]
     Indication: DRUG USE FOR UNKNOWN INDICATION
     Dates: start: 20070527, end: 20070627
  5. FUROSEMID [Interacting]
     Indication: DRUG USE FOR UNKNOWN INDICATION
     Dates: start: 20070527, end: 20070627
  6. GASTROZEPIN [Concomitant]
     Indication: DRUG USE FOR UNKNOWN INDICATION
     Dates: start: 20070527, end: 20070627
  7. PANTOPRAZOLE [Concomitant]
     Indication: DRUG USE FOR UNKNOWN INDICATION
     Dates: start: 20070527, end: 20070627
  8. FOLSAN [Concomitant]
     Indication: DRUG USE FOR UNKNOWN INDICATION
     Dates: start: 20070527, end: 20070627
  9. ABILIFY [Concomitant]
     Indication: DRUG USE FOR UNKNOWN INDICATION
     Dates: start: 20070528, end: 20070627

REACTIONS (2)
  - DRUG INTERACTION [None]
  - ELECTROCARDIOGRAM QT PROLONGED [None]
